FAERS Safety Report 5683538-9 (Version None)
Quarter: 2008Q1

REPORT INFORMATION
  Report Type: 
  Country: None (occurrence: None)
  Receive Date: 20080326
  Receipt Date: 20080317
  Transmission Date: 20080703
  Serious: Yes (Hospitalization)
  Sender: FDA-Public Use
  Company Number: 2008AL001709

PATIENT
  Age: 78 Year
  Sex: Male

DRUGS (6)
  1. AMANTADINE HCL [Suspect]
     Indication: PARKINSON'S DISEASE
     Dosage: 100 MG; QD
     Dates: start: 20070316, end: 20070324
  2. CARBIDOPA [Concomitant]
  3. LEVODOPA [Concomitant]
  4. ROPINIROLE HCL [Concomitant]
  5. LEVODOPA [Concomitant]
  6. BENSERAZIDE [Concomitant]

REACTIONS (7)
  - ASTHENIA [None]
  - BLOOD CREATINE INCREASED [None]
  - BLOOD SODIUM INCREASED [None]
  - BLOOD UREA INCREASED [None]
  - DELIRIUM [None]
  - PYREXIA [None]
  - SEROTONIN SYNDROME [None]
